FAERS Safety Report 8844291 (Version 2)
Quarter: 2012Q4

REPORT INFORMATION
  Report Type: 
  Country: GB (occurrence: GB)
  Receive Date: 20121017
  Receipt Date: 20121204
  Transmission Date: 20130627
  Serious: Yes (Other)
  Sender: FDA-Public Use
  Company Number: GB-BAYER-2012-106834

PATIENT
  Sex: Male

DRUGS (1)
  1. AVELOX [Suspect]
     Indication: SINUSITIS
     Dosage: 1 DF, UNK

REACTIONS (5)
  - Toxicity to various agents [None]
  - Arthralgia [None]
  - Joint crepitation [None]
  - Emotional distress [None]
  - Rash [Recovered/Resolved]
